FAERS Safety Report 9981274 (Version 1)
Quarter: 2014Q1

REPORT INFORMATION
  Report Type: Report from Study
  Country: US (occurrence: US)
  Receive Date: 20140307
  Receipt Date: 20140307
  Transmission Date: 20141002
  Serious: Yes (Other)
  Sender: FDA-Public Use
  Company Number: US-ROCHE-1355221

PATIENT
  Sex: 0

DRUGS (1)
  1. NUTROPIN [Suspect]
     Indication: BODY HEIGHT BELOW NORMAL
     Route: 058

REACTIONS (4)
  - Scoliosis [Unknown]
  - Joint dislocation [Unknown]
  - Muscle spasticity [Unknown]
  - Drug dose omission [Unknown]
